FAERS Safety Report 25689511 (Version 1)
Quarter: 2025Q3

REPORT INFORMATION
  Report Type: Spontaneous
  Country: US (occurrence: US)
  Receive Date: 20250818
  Receipt Date: 20250818
  Transmission Date: 20251021
  Serious: Yes (Hospitalization, Other)
  Sender: EPIC PHARM
  Company Number: US-EPICPHARMA-US-2025EPCLIT00938

PATIENT
  Age: 69 Year
  Sex: Male

DRUGS (3)
  1. MIDAZOLAM HYDROCHLORIDE [Suspect]
     Active Substance: MIDAZOLAM HYDROCHLORIDE
     Indication: Status epilepticus
     Route: 065
  2. FENTANYL [Suspect]
     Active Substance: FENTANYL
     Indication: Status epilepticus
     Route: 065
  3. LEVETIRACETAM [Concomitant]
     Active Substance: LEVETIRACETAM
     Indication: Status epilepticus
     Route: 065

REACTIONS (2)
  - Encephalopathy [Recovering/Resolving]
  - Product use in unapproved indication [Unknown]
